FAERS Safety Report 7700889-4 (Version None)
Quarter: 2011Q3

REPORT INFORMATION
  Report Type: 
  Country: None (occurrence: None)
  Receive Date: 20110822
  Receipt Date: 20110812
  Transmission Date: 20111222
  Serious: Yes (Other)
  Sender: FDA-Public Use
  Company Number: PHHY2011MA73643

PATIENT

DRUGS (1)
  1. METHERGINE [Suspect]

REACTIONS (1)
  - WRONG DRUG ADMINISTERED [None]
